FAERS Safety Report 9782156 (Version 1)
Quarter: 2013Q4

REPORT INFORMATION
  Report Type: Spontaneous
  Country: US (occurrence: US)
  Receive Date: 20131226
  Receipt Date: 20131226
  Transmission Date: 20140711
  Serious: Yes (Other)
  Sender: FDA-Public Use
  Company Number: US-GLENMARK GENERICS INC.-2013GMK007916

PATIENT
  Sex: Female

DRUGS (5)
  1. ZOLMITRIPTAN [Suspect]
     Dosage: UNK, PRN
     Route: 048
  2. LYRICA [Concomitant]
     Indication: PRODUCT USED FOR UNKNOWN INDICATION
     Dosage: UNK
  3. LEVOTHYROXINE [Concomitant]
     Indication: PRODUCT USED FOR UNKNOWN INDICATION
     Dosage: UNK
  4. SALAGEN [Concomitant]
     Indication: SJOGREN^S SYNDROME
     Dosage: UNK
  5. EVOXAC [Concomitant]
     Indication: SJOGREN^S SYNDROME
     Dosage: UNK

REACTIONS (5)
  - Coeliac disease [Unknown]
  - Abdominal pain upper [Unknown]
  - Diarrhoea [Unknown]
  - Abdominal distension [Unknown]
  - Acne [Unknown]
